FAERS Safety Report 7565554-5 (Version None)
Quarter: 2011Q2

REPORT INFORMATION
  Report Type: 
  Country: None (occurrence: None)
  Receive Date: 20110615
  Receipt Date: 20110602
  Transmission Date: 20111010
  Serious: Yes (Other)
  Sender: FDA-Public Use
  Company Number: 2011MA006979

PATIENT
  Age: 53 Year
  Sex: Female

DRUGS (1)
  1. PHENOBARBITAL TAB [Suspect]
     Indication: EPILEPSY
     Dosage: 30 MG, TID;

REACTIONS (7)
  - HALLUCINATION, VISUAL [None]
  - BLOOD CALCIUM DECREASED [None]
  - VITAMIN D DECREASED [None]
  - URINARY TRACT DISORDER [None]
  - ABDOMINAL PAIN UPPER [None]
  - DEPRESSED MOOD [None]
  - GINGIVAL DISORDER [None]
